FAERS Safety Report 8828707 (Version 1)
Quarter: 2012Q4

REPORT INFORMATION
  Report Type: 
  Country: DE (occurrence: DE)
  Receive Date: 20121008
  Receipt Date: 20121008
  Transmission Date: 20130627
  Serious: Yes (Life-Threatening)
  Sender: FDA-Public Use
  Company Number: DE-TEVA-360919GER

PATIENT
  Age: 71 Year
  Sex: Female
  Weight: 66 kg

DRUGS (3)
  1. CARBOPLATIN [Suspect]
     Indication: OVARIAN CANCER METASTATIC
     Dosage: 250 Milligram Daily;
     Route: 042
  2. AVASTIN [Concomitant]
     Indication: OVARIAN CANCER METASTATIC
     Dosage: 300 Milligram Daily;
     Route: 042
  3. GEMCITABINE [Concomitant]
     Indication: OVARIAN CANCER METASTATIC
     Dosage: 1700 Milligram Daily;
     Route: 042

REACTIONS (6)
  - Hypersensitivity [Recovered/Resolved]
  - Loss of consciousness [Recovered/Resolved]
  - Hypotension [Recovered/Resolved]
  - Nausea [Recovered/Resolved]
  - Vomiting [Recovered/Resolved]
  - Rash [Unknown]
